FAERS Safety Report 5986233-1 (Version None)
Quarter: 2008Q4

REPORT INFORMATION
  Report Type: 
  Country: None (occurrence: None)
  Receive Date: 20081209
  Receipt Date: 20081201
  Transmission Date: 20090506
  Serious: Yes (Hospitalization)
  Sender: FDA-Public Use
  Company Number: US-BIOGENIDEC-2008BI025292

PATIENT
  Age: 50 Year
  Sex: Male

DRUGS (2)
  1. AVONEX [Suspect]
     Indication: MULTIPLE SCLEROSIS
     Route: 030
     Dates: start: 19960815, end: 20070520
  2. AVONEX [Suspect]
     Route: 030
     Dates: start: 20080808

REACTIONS (3)
  - ASTHENIA [None]
  - CELLULITIS [None]
  - MOBILITY DECREASED [None]
